FAERS Safety Report 10241222 (Version 1)
Quarter: 2014Q1

REPORT INFORMATION
  Report Type: Spontaneous
  Country: US (occurrence: None)
  Receive Date: 20140306
  Receipt Date: 20140306
  Transmission Date: 20141002
  Serious: Yes (Other)
  Sender: FDA-Public Use
  Company Number: 163-21880-13051079

PATIENT
  Age: 73 Year
  Sex: Female

DRUGS (12)
  1. REVLIMID (LENALIDOMIDE) (25 MILLIGRAM, CAPSULES) [Suspect]
     Indication: PLASMA CELL MYELOMA
     Route: 048
     Dates: start: 201008, end: 2010
  2. ASPIRIN (ACETYLSALICYLIC ACID) (UNKNOWN) (ACETYLSALICYLIC ACID) [Concomitant]
  3. DEXAMETHASONE (DEXAMETHASONE) (UNKNOWN) [Concomitant]
  4. FUROSEMIDE (FUROSEMIDE) (UNKNOWN) [Concomitant]
  5. ACYCLOVIR (ACICLOVIR) (UNKNOWN) [Concomitant]
  6. OXYCODONE (OXYCODONE) (UNKNOWN) (OXYCODONE) [Concomitant]
  7. WARFARIN (WARFARIN) (UNKNOWN) [Concomitant]
  8. ENOXAPARIN (ENOXAPARIN) (UNKNOWN) [Concomitant]
  9. CALCIUM WITH VITAMIN D (CALCIUM WITH VITAMIN D) (UNKNOWN) [Concomitant]
  10. VELCADE (BORTEZOMIB) (UNKNOWN) [Concomitant]
  11. COUMADIN (WARFARIN SODIUM) (UNKNOWN) [Concomitant]
  12. MAGNESIUM OXIDE (MAGNESIUM OXIDE) (UNKNOWN) [Concomitant]

REACTIONS (4)
  - Platelet count decreased [None]
  - Gastrooesophageal reflux disease [None]
  - Diarrhoea [None]
  - Asthenia [None]
